FAERS Safety Report 7675257-4 (Version None)
Quarter: 2011Q3

REPORT INFORMATION
  Report Type: 
  Country: None (occurrence: None)
  Receive Date: 20110810
  Receipt Date: 20110728
  Transmission Date: 20111222
  Serious: Yes (Hospitalization)
  Sender: FDA-Public Use
  Company Number: NO-TEVA-293166ISR

PATIENT
  Sex: Female

DRUGS (7)
  1. ASPIRIN [Suspect]
     Dosage: 75 MILLIGRAM;
     Route: 048
  2. ZOPICLONE [Concomitant]
     Dosage: 1 DOSAGE FORMS;
     Route: 048
  3. LORATIDIN [Concomitant]
     Dosage: 10 MILLIGRAM;
     Route: 048
     Dates: end: 20110715
  4. METFORMIN HCL [Suspect]
     Indication: TYPE 2 DIABETES MELLITUS
     Dosage: 1000 MILLIGRAM;
     Route: 048
     Dates: end: 20110714
  5. GLIMEPIRID [Concomitant]
     Dosage: 1 MILLIGRAM;
     Route: 048
  6. SPIRONOLACTONE [Suspect]
     Dosage: 50 MILLIGRAM;
     Route: 048
     Dates: end: 20110715
  7. ATACAND HCT [Concomitant]
     Dosage: 1 DOSAGE FORMS; 16/12,5 MG TABLET, 1 X 1
     Route: 048

REACTIONS (4)
  - VOMITING [None]
  - DUODENAL ULCER [None]
  - DEHYDRATION [None]
  - NAUSEA [None]
